FAERS Safety Report 17398180 (Version 1)
Quarter: 2020Q1

REPORT INFORMATION
  Report Type: Spontaneous
  Country: US (occurrence: US)
  Receive Date: 20200210
  Receipt Date: 20200210
  Transmission Date: 20200409
  Serious: Yes (Other)
  Sender: FDA-Public Use
  Company Number: US-PFIZER INC-2015055684

PATIENT
  Age: 58 Year
  Sex: Male

DRUGS (5)
  1. VIAGRA [Concomitant]
     Active Substance: SILDENAFIL CITRATE
     Indication: ERECTILE DYSFUNCTION
     Dosage: UNK [1/2 -1 TAB ORALLY 30 MINUTES PRIOR TO SEXUAL ACTIVITY]
     Route: 048
  2. LYRICA [Suspect]
     Active Substance: PREGABALIN
     Indication: NECK PAIN
     Dosage: 50 MG, 3 TIMES DAILY
     Route: 048
  3. LYRICA [Suspect]
     Active Substance: PREGABALIN
     Indication: BACK PAIN
  4. LYRICA [Suspect]
     Active Substance: PREGABALIN
     Indication: HYPOAESTHESIA
     Dosage: 150 MG, 3X/DAY
     Route: 048
  5. LYRICA [Suspect]
     Active Substance: PREGABALIN
     Indication: NEURALGIA

REACTIONS (1)
  - Gait disturbance [Unknown]
